FAERS Safety Report 10524733 (Version 2)
Quarter: 2015Q1

REPORT INFORMATION
  Report Type: Spontaneous
  Country: JP (occurrence: JP)
  Receive Date: 20141017
  Receipt Date: 20150106
  Transmission Date: 20150720
  Serious: Yes (Hospitalization, Other)
  Sender: FDA-Public Use
  Company Number: JP-BAYER-2014-151790

PATIENT
  Age: 73 Year
  Sex: Male

DRUGS (2)
  1. HYDREA [Concomitant]
     Active Substance: HYDROXYUREA
     Indication: ESSENTIAL THROMBOCYTHAEMIA
     Dosage: UNK
     Route: 048
  2. ACETYLSALICYLIC ACID({=100 MG) [Suspect]
     Active Substance: ASPIRIN
     Indication: ESSENTIAL THROMBOCYTHAEMIA
     Dosage: UNK
     Route: 048

REACTIONS (4)
  - Product use issue [None]
  - Epigastric discomfort [None]
  - Renal impairment [None]
  - Oesophageal carcinoma [None]
